FAERS Safety Report 9486644 (Version 1)
Quarter: 2013Q3

REPORT INFORMATION
  Report Type: Spontaneous
  Country: US (occurrence: None)
  Receive Date: 20130827
  Receipt Date: 20130827
  Transmission Date: 20140515
  Serious: Yes (Other)
  Sender: FDA-Public Use
  Company Number: DSU-2013-04369

PATIENT
  Sex: Female

DRUGS (2)
  1. WELCHOL [Suspect]
     Indication: HYPERCHOLESTEROLAEMIA
     Route: 048
  2. LIPITOR (ATORVASTATIN CALCIUM) (ATORVASTATIN CALCIUM) [Concomitant]

REACTIONS (2)
  - Neoplasm malignant [None]
  - Rhabdomyolysis [None]
